FAERS Safety Report 5401715-9 (Version None)
Quarter: 2007Q3

REPORT INFORMATION
  Report Type: 
  Country: None (occurrence: None)
  Receive Date: 20070731
  Receipt Date: 20070717
  Transmission Date: 20080115
  Serious: Yes (Hospitalization)
  Sender: FDA-Public Use
  Company Number: US-ELI_LILLY_AND_COMPANY-US200706004819

PATIENT
  Age: 89 Year
  Sex: Female
  Weight: 78.911 kg

DRUGS (10)
  1. FORTEO [Suspect]
     Indication: OSTEOPOROSIS
     Dosage: UNK, UNK
     Dates: start: 20070608, end: 20070601
  2. FORTEO [Suspect]
     Dosage: UNK, UNK
     Dates: start: 20070619, end: 20070701
  3. DIOVAN [Concomitant]
  4. LASIX [Concomitant]
  5. METAXALONE [Concomitant]
  6. ZOCOR [Concomitant]
  7. PREVACID [Concomitant]
  8. CLONIDINE [Concomitant]
  9. ACTONEL [Concomitant]
  10. NAPROXEN [Concomitant]

REACTIONS (5)
  - CHEST PAIN [None]
  - ERYTHEMA [None]
  - GAIT DISTURBANCE [None]
  - MALAISE [None]
  - OEDEMA PERIPHERAL [None]
